FAERS Safety Report 7380964-7 (Version None)
Quarter: 2011Q1

REPORT INFORMATION
  Report Type: 
  Country: None (occurrence: None)
  Receive Date: 20110329
  Receipt Date: 20110322
  Transmission Date: 20110831
  Serious: Yes (Other)
  Sender: FDA-Public Use
  Company Number: DK-ABBOTT-11P-044-0711456-00

PATIENT
  Sex: Female
  Weight: 51 kg

DRUGS (3)
  1. SEROTIDE INHALATION POWDER [Concomitant]
     Indication: ASTHMA
     Dosage: NOT USED EVERY DAY - ONLY WHEN NEEDED
  2. PROCREN DEPOT 3.75 MG [Suspect]
     Indication: PRECOCIOUS PUBERTY
     Route: 058
  3. SEROQUEL [Concomitant]
     Indication: ANXIOLYTIC THERAPY

REACTIONS (2)
  - MALAISE [None]
  - VOMITING [None]
